FAERS Safety Report 6350703-7 (Version None)
Quarter: 2009Q3

REPORT INFORMATION
  Report Type: 
  Country: None (occurrence: None)
  Receive Date: 20090911
  Receipt Date: 20090622
  Transmission Date: 20100115
  Serious: No
  Sender: FDA-Public Use
  Company Number: US-ABBOTT-07P-163-0368634-00

PATIENT
  Sex: Female
  Weight: 111 kg

DRUGS (4)
  1. HUMIRA [Suspect]
     Indication: RHEUMATOID ARTHRITIS
     Route: 058
     Dates: start: 20070301
  2. METHOTREXATE [Concomitant]
     Indication: RHEUMATOID ARTHRITIS
     Route: 048
     Dates: start: 19950101
  3. FOLIC ACID [Concomitant]
     Indication: RHEUMATOID ARTHRITIS
     Route: 048
     Dates: start: 19950101
  4. HYZAAR [Concomitant]
     Indication: HYPERTENSION
     Dosage: 50MG/12.5MG
     Route: 048
     Dates: start: 20070501

REACTIONS (5)
  - INCORRECT DOSE ADMINISTERED [None]
  - INJECTION SITE DISCHARGE [None]
  - INJECTION SITE NODULE [None]
  - INJECTION SITE URTICARIA [None]
  - INJECTION SITE VESICLES [None]
